FAERS Safety Report 22118943 (Version 1)
Quarter: 2023Q1

REPORT INFORMATION
  Report Type: Spontaneous
  Country: None (occurrence: SE)
  Receive Date: 20230321
  Receipt Date: 20230321
  Transmission Date: 20230418
  Serious: Yes (Other)
  Sender: FDA-Public Use
  Company Number: SE-Therakind Limited-2139319

PATIENT
  Age: 64 Year
  Sex: Male

DRUGS (6)
  1. METHOTREXATE [Suspect]
     Active Substance: METHOTREXATE
     Indication: Psoriasis
  2. METFORMIN [Concomitant]
     Active Substance: METFORMIN HYDROCHLORIDE
  3. ENALAPRIL [Concomitant]
     Active Substance: ENALAPRIL
  4. ROSUVASTATIN [Concomitant]
     Active Substance: ROSUVASTATIN
  5. AMLODIPINE [Concomitant]
     Active Substance: AMLODIPINE BESYLATE
  6. BISOPROLOL. [Concomitant]
     Active Substance: BISOPROLOL FUMARATE

REACTIONS (2)
  - Hypertension [Recovered/Resolved]
  - Cold sweat [Recovered/Resolved]

NARRATIVE: CASE EVENT DATE: 20230301
